FAERS Safety Report 24602400 (Version 2)
Quarter: 2024Q4

REPORT INFORMATION
  Report Type: Spontaneous
  Country: JP (occurrence: JP)
  Receive Date: 20241111
  Receipt Date: 20241204
  Transmission Date: 20250114
  Serious: Yes (Life-Threatening)
  Sender: ALEXION PHARMACEUTICALS
  Company Number: JP-ASTRAZENECA-240107021_013120_P_1

PATIENT
  Age: 54 Year

DRUGS (5)
  1. DURVALUMAB [Suspect]
     Active Substance: DURVALUMAB
     Indication: Bile duct cancer
  2. GEMCITABINE HYDROCHLORIDE [Concomitant]
     Active Substance: GEMCITABINE HYDROCHLORIDE
     Indication: Bile duct cancer
     Dosage: DOSE UNKNOWN
     Route: 065
  3. GEMCITABINE HYDROCHLORIDE [Concomitant]
     Active Substance: GEMCITABINE HYDROCHLORIDE
     Dosage: DOSE UNKNOWN
     Route: 065
  4. CISPLATIN [Concomitant]
     Active Substance: CISPLATIN
     Indication: Bile duct cancer
     Dosage: DOSE UNKNOWN
     Route: 065
  5. CISPLATIN [Concomitant]
     Active Substance: CISPLATIN
     Dosage: DOSE UNKNOWN
     Route: 065

REACTIONS (1)
  - Neutrophil count decreased [Unknown]
